FAERS Safety Report 14309584 (Version 1)
Quarter: 2017Q4

REPORT INFORMATION
  Report Type: Spontaneous
  Country: US (occurrence: US)
  Receive Date: 20171220
  Receipt Date: 20171220
  Transmission Date: 20180321
  Serious: Yes (Hospitalization, Other)
  Sender: FDA-Public Use
  Company Number: US-ZYDUS-018413

PATIENT
  Age: 33 Year
  Sex: Female

DRUGS (1)
  1. OXYCODONE [Suspect]
     Active Substance: OXYCODONE
     Indication: PRODUCT USED FOR UNKNOWN INDICATION
     Route: 065

REACTIONS (34)
  - Loss of personal independence in daily activities [Recovered/Resolved]
  - Emotional disorder [Recovering/Resolving]
  - Confusional state [Recovered/Resolved]
  - Demyelination [Recovering/Resolving]
  - Pneumonia aspiration [Unknown]
  - Leukoencephalopathy [Recovering/Resolving]
  - Executive dysfunction [Recovering/Resolving]
  - Myoclonus [Recovering/Resolving]
  - CSF myelin basic protein increased [Recovering/Resolving]
  - Sepsis [Unknown]
  - Abnormal behaviour [Recovering/Resolving]
  - Overdose [Unknown]
  - Urinary incontinence [Recovering/Resolving]
  - Gait disturbance [Recovering/Resolving]
  - Dysarthria [Recovered/Resolved]
  - Memory impairment [Recovering/Resolving]
  - Romberg test positive [Recovering/Resolving]
  - Hypotension [Recovering/Resolving]
  - Altered state of consciousness [Recovered/Resolved]
  - Respiratory failure [Unknown]
  - Anal incontinence [Recovering/Resolving]
  - Mood altered [Recovering/Resolving]
  - Dysmetria [Recovering/Resolving]
  - Hypokinesia [Recovering/Resolving]
  - Decreased interest [Recovering/Resolving]
  - Impulsive behaviour [Recovering/Resolving]
  - Ataxia [Recovering/Resolving]
  - Cognitive disorder [Recovering/Resolving]
  - Dyskinesia [Recovering/Resolving]
  - Cerebral infarction [Recovered/Resolved]
  - Disorientation [Recovering/Resolving]
  - Disturbance in attention [Recovering/Resolving]
  - Distractibility [Recovering/Resolving]
  - Apraxia [Recovering/Resolving]
